FAERS Safety Report 14901788 (Version 1)
Quarter: 2018Q2

REPORT INFORMATION
  Report Type: Report from Study
  Country: DE (occurrence: DE)
  Receive Date: 20180516
  Receipt Date: 20180516
  Transmission Date: 20180711
  Serious: Yes (Hospitalization)
  Sender: FDA-Public Use
  Company Number: DE-PFIZER INC-2018195655

PATIENT
  Age: 65 Year
  Sex: Female
  Weight: 74 kg

DRUGS (2)
  1. BEVACIZUMAB. [Concomitant]
     Active Substance: BEVACIZUMAB
     Indication: BREAST CANCER
     Dosage: 15 MG/M2, EVERY 3 WEEKS
     Route: 042
     Dates: start: 20130813, end: 20131105
  2. DOCETAXEL. [Suspect]
     Active Substance: DOCETAXEL
     Indication: BREAST CANCER
     Dosage: 1 DF, EVERY 3 WEEKS (DOSE(100MG/M2 185 TOTAL)
     Route: 042
     Dates: start: 20130813, end: 20131105

REACTIONS (2)
  - Injection site pain [Unknown]
  - Extravasation [Unknown]

NARRATIVE: CASE EVENT DATE: 20131115
